FAERS Safety Report 6571970-0 (Version None)
Quarter: 2010Q1

REPORT INFORMATION
  Report Type: 
  Country: None (occurrence: None)
  Receive Date: 20100205
  Receipt Date: 20100128
  Transmission Date: 20100710
  Serious: Yes (Other)
  Sender: FDA-Public Use
  Company Number: FR-PFIZER INC-2009309619

PATIENT
  Age: 27 Year
  Sex: Male

DRUGS (2)
  1. METRONIDAZOLE AND METRONIDAZOLE BENZOATE AND METRONIDAZOLE HYDROCHLORI [Suspect]
     Indication: BRAIN ABSCESS
     Dosage: 1.5 G, 1X/DAY
  2. THIAMPHENICOL [Suspect]
     Indication: BRAIN ABSCESS

REACTIONS (2)
  - CENTRAL NERVOUS SYSTEM LESION [None]
  - NEUROPATHY PERIPHERAL [None]
